FAERS Safety Report 8490248-1 (Version None)
Quarter: 2012Q3

REPORT INFORMATION
  Report Type: 
  Country: None (occurrence: None)
  Receive Date: 20120705
  Receipt Date: 20120130
  Transmission Date: 20120928
  Serious: No
  Sender: FDA-Public Use
  Company Number: US-BAUSCH-2012BL000676

PATIENT
  Age: 33 Year
  Sex: Female
  Weight: 77 kg

DRUGS (1)
  1. OPCON-A [Suspect]
     Indication: PRODUCT USED FOR UNKNOWN INDICATION
     Route: 047
     Dates: start: 20120121, end: 20120130

REACTIONS (1)
  - MYDRIASIS [None]
